FAERS Safety Report 19185720 (Version 1)
Quarter: 2021Q2

REPORT INFORMATION
  Report Type: Spontaneous
  Country: ES (occurrence: ES)
  Receive Date: 20210427
  Receipt Date: 20210427
  Transmission Date: 20210717
  Serious: Yes (Other)
  Sender: FDA-Public Use
  Company Number: ES-PFIZER INC-2021429713

PATIENT
  Age: 85 Year
  Sex: Female

DRUGS (7)
  1. DELTIUS [Concomitant]
     Active Substance: CHOLECALCIFEROL
  2. LEXATIN [BROMAZEPAM] [Concomitant]
     Active Substance: BROMAZEPAM
  3. DOLOCATIL [Concomitant]
     Active Substance: ACETAMINOPHEN
  4. ZALDIAR [Concomitant]
     Active Substance: ACETAMINOPHEN\TRAMADOL HYDROCHLORIDE
  5. TOVIAZ [Suspect]
     Active Substance: FESOTERODINE FUMARATE
     Dosage: 8 MG, 1X/DAY
     Route: 048
     Dates: start: 20210403, end: 20210403
  6. ESOMEPRAZOLE. [Concomitant]
     Active Substance: ESOMEPRAZOLE MAGNESIUM
  7. CONDROSULF [Concomitant]
     Active Substance: SODIUM CHONDROITIN SULFATE

REACTIONS (2)
  - Cheilitis [Unknown]
  - Glossitis [Unknown]

NARRATIVE: CASE EVENT DATE: 20210403
